FAERS Safety Report 17459065 (Version 1)
Quarter: 2020Q1

REPORT INFORMATION
  Report Type: Spontaneous
  Country: US (occurrence: US)
  Receive Date: 20200212
  Receipt Date: 20200212
  Transmission Date: 20200409
  Serious: No
  Sender: FDA-Public Use
  Company Number: None

PATIENT
  Age: 71 Year
  Sex: Female
  Weight: 68.04 kg

DRUGS (4)
  1. FISH OIL [Concomitant]
     Active Substance: FISH OIL
  2. BABY ASPIRIN [Concomitant]
     Active Substance: ASPIRIN
  3. MULTIVIT [Concomitant]
     Active Substance: VITAMINS
  4. RANITIDINE HCL 150MG TAB [Suspect]
     Active Substance: RANITIDINE
     Indication: GASTROOESOPHAGEAL REFLUX DISEASE
     Dosage: ?          QUANTITY:1 PILL;?
     Route: 048
     Dates: start: 20181003, end: 201906

REACTIONS (8)
  - Back pain [None]
  - Lethargy [None]
  - Muscle spasms [None]
  - Nausea [None]
  - Asthenia [None]
  - Vomiting [None]
  - Weight decreased [None]
  - Abdominal pain upper [None]
